FAERS Safety Report 17035836 (Version 2)
Quarter: 2019Q4

REPORT INFORMATION
  Report Type: Spontaneous
  Country: JP (occurrence: JP)
  Receive Date: 20191115
  Receipt Date: 20191122
  Transmission Date: 20200122
  Serious: Yes (Death, Hospitalization)
  Sender: FDA-Public Use
  Company Number: JP-ROCHE-2472339

PATIENT
  Age: 72 Year
  Sex: Female
  Weight: 51 kg

DRUGS (4)
  1. REBAMIPIDE [Concomitant]
     Active Substance: REBAMIPIDE
     Dosage: DOSAGE IS UNCERTAIN.
     Route: 048
  2. AVASTIN [Suspect]
     Active Substance: BEVACIZUMAB
     Indication: BREAST CANCER
     Dosage: DOSAGE IS UNCERTAIN.
     Route: 041
  3. OLMESARTAN [Concomitant]
     Active Substance: OLMESARTAN
     Dosage: DOSAGE IS UNCERTAIN.
     Route: 048
  4. PACLITAXEL. [Concomitant]
     Active Substance: PACLITAXEL
     Indication: BREAST CANCER
     Dosage: DOSAGE IS UNCERTAIN.
     Route: 041

REACTIONS (4)
  - Gastrointestinal haemorrhage [Unknown]
  - Disease progression [Fatal]
  - Short-bowel syndrome [Unknown]
  - Gastrointestinal perforation [Unknown]
